FAERS Safety Report 9870219 (Version 3)
Quarter: 2014Q1

REPORT INFORMATION
  Report Type: Spontaneous
  Country: JP (occurrence: JP)
  Receive Date: 20140205
  Receipt Date: 20140305
  Transmission Date: 20141002
  Serious: Yes (Hospitalization)
  Sender: FDA-Public Use
  Company Number: JP-BAYER-2014-016433

PATIENT
  Age: 58 Year
  Sex: Female
  Weight: 49.89 kg

DRUGS (3)
  1. FESIN [Concomitant]
     Dosage: DAILY DOSE 2 DF
  2. MIRENA [Suspect]
     Indication: ADENOMYOSIS
     Dosage: 20 MCG/24HR, CONT
     Route: 015
     Dates: start: 20090826, end: 20120712
  3. MIRENA [Suspect]
     Indication: MENORRHAGIA

REACTIONS (2)
  - Endometrial stromal sarcoma [Recovered/Resolved]
  - Off label use [None]
